FAERS Safety Report 9759640 (Version 2)
Quarter: 2013Q4

REPORT INFORMATION
  Report Type: Spontaneous
  Country: US (occurrence: US)
  Receive Date: 20131216
  Receipt Date: 20131216
  Transmission Date: 20140711
  Serious: No
  Sender: FDA-Public Use
  Company Number: US-GILEAD-2010-0028461

PATIENT
  Sex: Female
  Weight: 53.52 kg

DRUGS (9)
  1. LETAIRIS [Suspect]
     Indication: PULMONARY ARTERIAL HYPERTENSION
     Route: 048
     Dates: start: 20100212
  2. LASIX [Concomitant]
  3. POTASSIUM [Concomitant]
  4. NAPROXEN SODIUM [Concomitant]
  5. TOPROL [Concomitant]
  6. CELEXA [Concomitant]
  7. ASPIRIN [Concomitant]
  8. MULTIVITAMIN [Concomitant]
  9. DILTIAZEM [Concomitant]

REACTIONS (1)
  - Oedema [Not Recovered/Not Resolved]
